FAERS Safety Report 9192841 (Version 1)
Quarter: 2013Q1

REPORT INFORMATION
  Report Type: Spontaneous
  Country: SE (occurrence: SE)
  Receive Date: 20130327
  Receipt Date: 20130327
  Transmission Date: 20140127
  Serious: Yes (Hospitalization)
  Sender: FDA-Public Use
  Company Number: SE-PFIZER INC-2006028185

PATIENT
  Age: 75 Year
  Sex: Male

DRUGS (3)
  1. IPREN [Suspect]
     Indication: TOOTHACHE
     Dosage: UNSPECIFIED
     Route: 048
     Dates: start: 20040826, end: 20040828
  2. LANZO [Concomitant]
     Dosage: UNSPECIFIED
     Route: 048
  3. ALFADIL BPH [Concomitant]
     Indication: BENIGN PROSTATIC HYPERPLASIA
     Dosage: UNSPECIFIED
     Route: 048

REACTIONS (2)
  - Atrial fibrillation [Unknown]
  - Stomatitis [Unknown]
